FAERS Safety Report 25735891 (Version 4)
Quarter: 2025Q4

REPORT INFORMATION
  Report Type: Spontaneous
  Country: US (occurrence: US)
  Receive Date: 20250828
  Receipt Date: 20251122
  Transmission Date: 20260118
  Serious: No
  Sender: DR REDDYS
  Company Number: US-DRL-USA-USA/2025/08/012455

PATIENT
  Age: 79 Year
  Sex: Male

DRUGS (1)
  1. CLONIDINE TRANSDERMAL SYSTEM [Suspect]
     Active Substance: CLONIDINE
     Indication: Blood pressure abnormal
     Dosage: THERAPY START DATE: 4 WEEKS AGO, EARLY SEPTEMBER. 2ND OF SEPTEMBER
     Route: 065

REACTIONS (2)
  - Wrong technique in product usage process [Unknown]
  - Product adhesion issue [Unknown]
